FAERS Safety Report 15375333 (Version 3)
Quarter: 2018Q4

REPORT INFORMATION
  Report Type: Spontaneous
  Country: US (occurrence: US)
  Receive Date: 20180912
  Receipt Date: 20181102
  Transmission Date: 20190204
  Serious: No
  Sender: FDA-Public Use
  Company Number: US-SA-2018SA254699

PATIENT
  Age: 69 Year
  Sex: Male
  Weight: 102 kg

DRUGS (29)
  1. DUPIXENT [Suspect]
     Active Substance: DUPILUMAB
     Indication: DERMATITIS ATOPIC
     Dosage: 300 MG, QOW
     Route: 058
     Dates: start: 20180308
  2. ASPIRIN [ACETYLSALICYLIC ACID] [Concomitant]
     Active Substance: ASPIRIN
  3. COENZYME Q10 [Concomitant]
     Active Substance: UBIDECARENONE
  4. RANITIDINE. [Concomitant]
     Active Substance: RANITIDINE
     Indication: GASTROOESOPHAGEAL REFLUX DISEASE
     Dosage: 300 MG, QD
  5. VITAMIN B12 [Concomitant]
     Active Substance: CYANOCOBALAMIN
     Indication: NEUROPATHY PERIPHERAL
     Dosage: 100 MG, QD
  6. INDAPAMIDE. [Concomitant]
     Active Substance: INDAPAMIDE
     Dosage: .25 MG
  7. MILK THISTLE [SILYBUM MARIANUM] [Concomitant]
     Indication: LIVER DISORDER
     Dosage: 2 DF, QD
  8. DUPIXENT [Suspect]
     Active Substance: DUPILUMAB
     Indication: ECZEMA
  9. ALPHA LIPOIC ACID [Concomitant]
     Active Substance: .ALPHA.-LIPOIC ACID
  10. LICORICE ROOT [Concomitant]
     Active Substance: LICORICE
  11. QUERCETIN DIHYDRATE [Concomitant]
  12. ZINC. [Concomitant]
     Active Substance: ZINC
  13. CIALIS [Concomitant]
     Active Substance: TADALAFIL
     Dosage: 5 MG
  14. ALLEGRA [Concomitant]
     Active Substance: FEXOFENADINE HYDROCHLORIDE
     Indication: PRURITUS
     Dosage: 180 MG, QD
  15. ZYRTEC [Concomitant]
     Active Substance: CETIRIZINE HYDROCHLORIDE
  16. MILK THISTLE [SILYBUM MARIANUM SEED] [Concomitant]
  17. GLUCOVANCE [Concomitant]
     Active Substance: GLYBURIDE\METFORMIN HYDROCHLORIDE
     Indication: DIABETES MELLITUS
     Dosage: 2 DF, QD
  18. GLUTAMINE [Concomitant]
     Active Substance: GLUTAMINE
     Indication: GASTROINTESTINAL PAIN
     Dosage: 500 MG, QD
  19. QUERCETIN [Concomitant]
     Active Substance: QUERCETIN
     Indication: CARDIAC DISORDER
     Dosage: 3 DF, QD
  20. ARGININE [Concomitant]
     Active Substance: ARGININE
  21. CRESTOR [Concomitant]
     Active Substance: ROSUVASTATIN CALCIUM
     Indication: BLOOD CHOLESTEROL INCREASED
     Dosage: 10 MG
  22. BENADRYL [Concomitant]
     Active Substance: DIPHENHYDRAMINE HYDROCHLORIDE
     Indication: PRURITUS
     Dosage: 25 MG, BID
  23. ARGININE TIOPRONINE [Concomitant]
     Dosage: 750 MG
  24. BIOTIN [Concomitant]
     Active Substance: BIOTIN
  25. JARDIANCE [Concomitant]
     Active Substance: EMPAGLIFLOZIN
     Indication: DIABETES MELLITUS
     Dosage: 10 MG
  26. MAGNESIUM GLUCONATE [Concomitant]
     Active Substance: MAGNESIUM GLUCONATE
  27. LOSARTAN. [Concomitant]
     Active Substance: LOSARTAN
     Indication: HYPERTENSION
     Dosage: 100 MG, QD
  28. SYNTHROID [Concomitant]
     Active Substance: LEVOTHYROXINE SODIUM
     Indication: HYPOTHYROIDISM
     Dosage: 7.5 MG, QD
  29. MAGNESIUM [Concomitant]
     Active Substance: MAGNESIUM
     Indication: CARDIAC DISORDER
     Dosage: 2 DF, QD

REACTIONS (11)
  - Scratch [Not Recovered/Not Resolved]
  - Dermatitis [Not Recovered/Not Resolved]
  - Erythema [Unknown]
  - Product use issue [Unknown]
  - Therapeutic response decreased [Unknown]
  - Drug ineffective [Unknown]
  - Skin disorder [Unknown]
  - Pruritus [Not Recovered/Not Resolved]
  - Sleep disorder [Unknown]
  - Eczema [Unknown]
  - Skin exfoliation [Not Recovered/Not Resolved]

NARRATIVE: CASE EVENT DATE: 201809
